FAERS Safety Report 11960764 (Version 1)
Quarter: 2016Q1

REPORT INFORMATION
  Report Type: Report from Study
  Country: US (occurrence: US)
  Receive Date: 20160126
  Receipt Date: 20160126
  Transmission Date: 20160526
  Serious: No
  Sender: FDA-Public Use
  Company Number: US-ABBVIE-15K-163-1371208-00

PATIENT
  Age: 40 Year
  Sex: Female

DRUGS (1)
  1. HUMIRA [Suspect]
     Active Substance: ADALIMUMAB
     Indication: RHEUMATOID ARTHRITIS
     Route: 065
     Dates: start: 20150310

REACTIONS (13)
  - Tremor [Recovering/Resolving]
  - Miliaria [Recovering/Resolving]
  - Injection site bruising [Recovering/Resolving]
  - Anxiety [Recovering/Resolving]
  - Nausea [Recovering/Resolving]
  - Injection site urticaria [Recovering/Resolving]
  - Nervousness [Recovering/Resolving]
  - Vomiting [Recovering/Resolving]
  - Urticaria [Recovering/Resolving]
  - Injection site swelling [Recovering/Resolving]
  - Thinking abnormal [Recovering/Resolving]
  - Headache [Recovering/Resolving]
  - Injection site erythema [Recovering/Resolving]

NARRATIVE: CASE EVENT DATE: 201503
